FAERS Safety Report 8538020-8 (Version None)
Quarter: 2012Q3

REPORT INFORMATION
  Report Type: 
  Country: None (occurrence: None)
  Receive Date: 20120725
  Receipt Date: 20120712
  Transmission Date: 20120928
  Serious: No
  Sender: FDA-Public Use
  Company Number: US-ASTRAZENECA-2012SE48709

PATIENT
  Age: 43 Year
  Sex: Female

DRUGS (1)
  1. SEROQUEL [Suspect]
     Indication: SCHIZOAFFECTIVE DISORDER
     Route: 048

REACTIONS (2)
  - ACTIVITIES OF DAILY LIVING IMPAIRED [None]
  - DRUG DOSE OMISSION [None]
